FAERS Safety Report 18414812 (Version 1)
Quarter: 2020Q4

REPORT INFORMATION
  Report Type: Spontaneous
  Country: GB (occurrence: GB)
  Receive Date: 20201022
  Receipt Date: 20201022
  Transmission Date: 20210114
  Serious: Yes (Other)
  Sender: FDA-Public Use
  Company Number: GB-PFIZER INC-2020406022

PATIENT
  Age: 46 Year
  Sex: Female
  Weight: 80 kg

DRUGS (5)
  1. VALPROIC ACID. [Suspect]
     Active Substance: VALPROIC ACID
     Indication: BIPOLAR DISORDER
     Dosage: 1000 MG, DAILY
     Route: 048
     Dates: start: 20200312
  2. TEMAZEPAM. [Concomitant]
     Active Substance: TEMAZEPAM
  3. LAMOTRIGINE. [Concomitant]
     Active Substance: LAMOTRIGINE
  4. DEPO-PROVERA [Suspect]
     Active Substance: MEDROXYPROGESTERONE ACETATE
     Dosage: 150 MG
     Route: 051
     Dates: start: 20200312
  5. SELENIUM [Concomitant]
     Active Substance: SELENIUM

REACTIONS (2)
  - Alopecia [Not Recovered/Not Resolved]
  - Blood follicle stimulating hormone abnormal [Unknown]

NARRATIVE: CASE EVENT DATE: 202005
